FAERS Safety Report 11806469 (Version 5)
Quarter: 2016Q4

REPORT INFORMATION
  Report Type: Report from Study
  Country: JP (occurrence: JP)
  Receive Date: 20151207
  Receipt Date: 20161118
  Transmission Date: 20170206
  Serious: Yes (Death, Hospitalization)
  Sender: FDA-Public Use
  Company Number: JP-EISAI MEDICAL RESEARCH-EC-2015-012502

PATIENT
  Age: 67 Year
  Sex: Female
  Weight: 65 kg

DRUGS (15)
  1. LENVIMA [Suspect]
     Active Substance: LENVATINIB
     Route: 048
     Dates: start: 20151006, end: 20151113
  2. ALFAROL [Concomitant]
     Active Substance: ALFACALCIDOL
  3. TENELIA [Concomitant]
     Active Substance: TENELIGLIPTIN
  4. SEIBULE [Concomitant]
     Active Substance: MIGLITOL
  5. SUREPOST [Concomitant]
     Active Substance: REPAGLINIDE
  6. KARY UNI [Concomitant]
     Active Substance: PIRENOXINE
  7. DRIED THYROID [Concomitant]
  8. LENVIMA [Suspect]
     Active Substance: LENVATINIB
     Indication: PAPILLARY THYROID CANCER
     Route: 048
     Dates: start: 20150917, end: 20151005
  9. LENVIMA [Suspect]
     Active Substance: LENVATINIB
     Route: 048
     Dates: start: 20151114, end: 20151211
  10. VALSARTAN. [Concomitant]
     Active Substance: VALSARTAN
  11. THYRADIN S [Concomitant]
     Active Substance: LEVOTHYROXINE SODIUM
  12. CALCIUM LACTATE HYDRATE [Concomitant]
     Active Substance: CALCIUM LACTATE
  13. PITAVASTATIN CA [Concomitant]
     Active Substance: PITAVASTATIN CALCIUM
  14. LOXONIN [Concomitant]
     Active Substance: LOXOPROFEN SODIUM
  15. SELBEX [Concomitant]
     Active Substance: TEPRENONE

REACTIONS (3)
  - Diarrhoea [Recovering/Resolving]
  - Cancer pain [Recovering/Resolving]
  - Malignant neoplasm progression [Fatal]

NARRATIVE: CASE EVENT DATE: 20150924
